FAERS Safety Report 6630858-7 (Version None)
Quarter: 2010Q1

REPORT INFORMATION
  Report Type: 
  Country: None (occurrence: None)
  Receive Date: 20100310
  Receipt Date: 20100310
  Transmission Date: 20100710
  Serious: Yes (Hospitalization)
  Sender: FDA-Public Use
  Company Number: None

PATIENT
  Sex: Male
  Weight: 67 kg

DRUGS (1)
  1. TAXOTERE [Suspect]
     Dosage: 125 MG

REACTIONS (1)
  - NEUTROPHIL COUNT ABNORMAL [None]
